FAERS Safety Report 5409756-2 (Version None)
Quarter: 2007Q3

REPORT INFORMATION
  Report Type: 
  Country: None (occurrence: None)
  Receive Date: 20070809
  Receipt Date: 20070731
  Transmission Date: 20080115
  Serious: Yes (Other)
  Sender: FDA-Public Use
  Company Number: B0482552A

PATIENT
  Age: 70 Year
  Sex: Female

DRUGS (7)
  1. AUGMENTIN '125' [Suspect]
     Indication: TOOTH ABSCESS
     Dosage: 625MG UNKNOWN
     Route: 048
     Dates: start: 20070607, end: 20070615
  2. AMLODIPINE [Concomitant]
     Indication: HYPERTENSION
     Dosage: 5MG PER DAY
  3. CHLORPHENIRAMINE MALEATE [Concomitant]
     Dosage: 4MG FOUR TIMES PER DAY
     Route: 048
  4. CO-DYDRAMOL [Concomitant]
     Indication: OSTEOARTHRITIS
     Route: 048
  5. DICLOFENAC [Concomitant]
     Dosage: 50MG THREE TIMES PER DAY
     Dates: start: 20070608
  6. LISINOPRIL [Concomitant]
     Indication: HYPERTENSION
     Route: 048
  7. METRONIDAZOLE [Concomitant]
     Dosage: 400MG THREE TIMES PER DAY
     Route: 048
     Dates: start: 20070608

REACTIONS (3)
  - HEPATOCELLULAR DAMAGE [None]
  - LIVER DISORDER [None]
  - PRURITUS [None]
